FAERS Safety Report 7310222-8 (Version None)
Quarter: 2011Q1

REPORT INFORMATION
  Report Type: 
  Country: None (occurrence: None)
  Receive Date: 20110224
  Receipt Date: 20110211
  Transmission Date: 20110831
  Serious: Yes (Hospitalization, Other)
  Sender: FDA-Public Use
  Company Number: US-ROCHE-458427

PATIENT
  Sex: Male
  Weight: 70.3 kg

DRUGS (2)
  1. ACCUTANE [Suspect]
     Dosage: DOSING REGIMEN REPORTED AS: QD DIVIDED DOSE.
     Route: 048
     Dates: start: 19921015, end: 19930317
  2. VITAMIN E [Concomitant]
     Dosage: DOSING REGIMEN REPORTED AS: BID.
     Route: 048
     Dates: start: 19921014

REACTIONS (30)
  - SMALL INTESTINAL OBSTRUCTION [None]
  - ILEITIS [None]
  - FATIGUE [None]
  - RECTAL TENESMUS [None]
  - DRY SKIN [None]
  - ALOPECIA [None]
  - POUCHITIS [None]
  - DEPRESSION [None]
  - DRUG DEPENDENCE [None]
  - IMMUNODEFICIENCY [None]
  - ANXIETY [None]
  - WEIGHT DECREASED [None]
  - COLITIS ULCERATIVE [None]
  - GASTROENTERITIS [None]
  - ARTHRALGIA [None]
  - GASTROOESOPHAGEAL REFLUX DISEASE [None]
  - STOMATITIS [None]
  - HIATUS HERNIA [None]
  - CROHN'S DISEASE [None]
  - SUICIDAL IDEATION [None]
  - ANAEMIA [None]
  - SEPSIS SYNDROME [None]
  - COLITIS [None]
  - HERNIA [None]
  - IRRITABLE BOWEL SYNDROME [None]
  - ADHESION [None]
  - POST-TRAUMATIC STRESS DISORDER [None]
  - INSOMNIA [None]
  - INFLAMMATORY BOWEL DISEASE [None]
  - ASTHMA [None]
